FAERS Safety Report 8805491 (Version 1)
Quarter: 2012Q4

REPORT INFORMATION
  Report Type: Report from Study
  Country: FR (occurrence: FR)
  Receive Date: 20120924
  Receipt Date: 20120924
  Transmission Date: 20130627
  Serious: Yes (Life-Threatening, Hospitalization)
  Sender: FDA-Public Use
  Company Number: FR-009507513-1209FRA001915

PATIENT

DRUGS (3)
  1. MK-0991 [Suspect]
     Dosage: 70 mg, qd
     Route: 042
     Dates: start: 20120826, end: 20120829
  2. VORICONAZOLE [Concomitant]
     Indication: ASPERGILLOSIS
     Dosage: 480 mg, bid
     Route: 042
     Dates: start: 20120830, end: 20120830
  3. VORICONAZOLE [Concomitant]
     Dosage: 300 mg, bid
     Route: 042
     Dates: start: 20120831, end: 20120912

REACTIONS (1)
  - Bronchopulmonary aspergillosis [Not Recovered/Not Resolved]
